FAERS Safety Report 7269274-6 (Version None)
Quarter: 2011Q1

REPORT INFORMATION
  Report Type: 
  Country: None (occurrence: None)
  Receive Date: 20110124
  Receipt Date: 20110118
  Transmission Date: 20110831
  Serious: Yes (Death)
  Sender: FDA-Public Use
  Company Number: DSA_44793_2011

PATIENT
  Sex: Female

DRUGS (1)
  1. XENAZINE [Suspect]
     Indication: MOTOR NEURONE DISEASE
     Dosage: (25 MG TID ORAL)
     Route: 048
     Dates: start: 20091112

REACTIONS (1)
  - DEATH [None]
